FAERS Safety Report 7811420-7 (Version None)
Quarter: 2011Q4

REPORT INFORMATION
  Report Type: 
  Country: None (occurrence: None)
  Receive Date: 20111013
  Receipt Date: 20111007
  Transmission Date: 20120403
  Serious: Yes (Hospitalization)
  Sender: FDA-Public Use
  Company Number: BE-SANOFI-AVENTIS-2011SA066434

PATIENT
  Age: 40 Year
  Sex: Female
  Weight: 52.3 kg

DRUGS (6)
  1. MOVIPREP [Concomitant]
  2. DOCETAXEL [Suspect]
     Dosage: EVERY 21 DAYS/CYCLE
     Route: 041
     Dates: start: 20110811, end: 20110811
  3. DURAGESIC-100 [Concomitant]
  4. PRIMPERAN TAB [Concomitant]
  5. BLINDED THERAPY [Suspect]
     Dosage: EVERY 21 DAYS/CYCLE
     Route: 042
     Dates: start: 20110811, end: 20110811
  6. PANTOPRAZOLE [Concomitant]

REACTIONS (1)
  - RADIATION OESOPHAGITIS [None]
